FAERS Safety Report 8309618-7 (Version None)
Quarter: 2012Q2

REPORT INFORMATION
  Report Type: 
  Country: None (occurrence: None)
  Receive Date: 20120423
  Receipt Date: 20120419
  Transmission Date: 20120825
  Serious: Yes (Death, Life-Threatening, Hospitalization)
  Sender: FDA-Public Use
  Company Number: ADR-2007-4355

PATIENT
  Age: 6 Year
  Sex: Male

DRUGS (1)
  1. LIORESAL [Suspect]
     Indication: MUSCLE SPASTICITY
     Dosage: 555 MCG, DAILY, INTRATH
     Route: 037

REACTIONS (15)
  - METABOLIC ACIDOSIS [None]
  - CSF TEST ABNORMAL [None]
  - CARDIAC DISORDER [None]
  - RESPIRATORY RATE DECREASED [None]
  - ATELECTASIS [None]
  - PULMONARY OEDEMA [None]
  - IMPLANT SITE EROSION [None]
  - PNEUMONIA [None]
  - HYPOPNOEA [None]
  - HAEMODYNAMIC INSTABILITY [None]
  - HYPOTENSION [None]
  - WOUND INFECTION STAPHYLOCOCCAL [None]
  - STAPHYLOCOCCAL BACTERAEMIA [None]
  - HYPERGLYCAEMIA [None]
  - HYPERNATRAEMIA [None]
